FAERS Safety Report 15400358 (Version 1)
Quarter: 2018Q4

REPORT INFORMATION
  Report Type: Spontaneous
  Country: FR (occurrence: FR)
  Receive Date: 20180919
  Receipt Date: 20180919
  Transmission Date: 20190204
  Serious: Yes (Life-Threatening)
  Sender: FDA-Public Use
  Company Number: FR-ACCORD-072466

PATIENT
  Age: 64 Year
  Sex: Female
  Weight: 59 kg

DRUGS (5)
  1. VENLAFAXINE/VENLAFAXINE HYDROCHLORIDE [Suspect]
     Active Substance: VENLAFAXINE HYDROCHLORIDE
  2. CODEINE [Suspect]
     Active Substance: CODEINE
  3. AMITRIPTYLINE [Suspect]
     Active Substance: AMITRIPTYLINE
  4. PRAZEPAM [Suspect]
     Active Substance: PRAZEPAM
  5. PARACETAMOL [Suspect]
     Active Substance: ACETAMINOPHEN

REACTIONS (3)
  - Toxicity to various agents [Unknown]
  - Coma [Recovered/Resolved]
  - Hepatocellular injury [Recovering/Resolving]

NARRATIVE: CASE EVENT DATE: 20180405
